FAERS Safety Report 15744130 (Version 2)
Quarter: 2019Q1

REPORT INFORMATION
  Report Type: Report from Study
  Country: None (occurrence: US)
  Receive Date: 20181220
  Receipt Date: 20190121
  Transmission Date: 20190417
  Serious: Yes (Other)
  Sender: FDA-Public Use
  Company Number: US-ABBVIE-18K-163-2596819-00

PATIENT
  Age: 66 Year
  Sex: Female

DRUGS (1)
  1. HUMIRA [Suspect]
     Active Substance: ADALIMUMAB
     Indication: CROHN^S DISEASE
     Route: 058

REACTIONS (5)
  - Blood pressure increased [Recovered/Resolved]
  - Cardiac disorder [Unknown]
  - Complication associated with device [Recovering/Resolving]
  - Chest pain [Recovered/Resolved]
  - Contusion [Recovering/Resolving]

NARRATIVE: CASE EVENT DATE: 2018
